FAERS Safety Report 10228515 (Version 2)
Quarter: 2014Q2

REPORT INFORMATION
  Report Type: Spontaneous
  Country: US (occurrence: US)
  Receive Date: 20140610
  Receipt Date: 20140618
  Transmission Date: 20141212
  Serious: No
  Sender: FDA-Public Use
  Company Number: US-PFIZER INC-2014155286

PATIENT
  Age: 75 Year
  Sex: Male

DRUGS (1)
  1. BOSULIF [Suspect]
     Dosage: 100 MG, UNK
     Dates: start: 20130625, end: 201404

REACTIONS (1)
  - Diarrhoea [Recovered/Resolved]
